FAERS Safety Report 10683356 (Version 1)
Quarter: 2014Q4

REPORT INFORMATION
  Report Type: Spontaneous
  Country: US (occurrence: US)
  Receive Date: 20141230
  Receipt Date: 20141230
  Transmission Date: 20150529
  Serious: No
  Sender: FDA-Public Use
  Company Number: US-BAUSCH-SYM-2014-22699

PATIENT
  Age: 68 Year
  Sex: Male
  Weight: 77.18 kg

DRUGS (2)
  1. XENAZINE [Suspect]
     Active Substance: TETRABENAZINE
     Dosage: 1 TABLET, ONCE A DAY
     Route: 048
     Dates: start: 20140623, end: 20140625
  2. XENAZINE [Suspect]
     Active Substance: TETRABENAZINE
     Indication: DYSKINESIA
     Dosage: 1 TABLET, ONCE A DAY
     Route: 048
     Dates: start: 201406, end: 201406

REACTIONS (3)
  - Off label use [Recovered/Resolved]
  - Muscle tightness [Not Recovered/Not Resolved]
  - Fatigue [Recovering/Resolving]

NARRATIVE: CASE EVENT DATE: 201406
